FAERS Safety Report 8697943 (Version 2)
Quarter: 2013Q4

REPORT INFORMATION
  Report Type: Spontaneous
  Country: BR (occurrence: BR)
  Receive Date: 20120801
  Receipt Date: 20131031
  Transmission Date: 20140711
  Serious: Yes (Other)
  Sender: FDA-Public Use
  Company Number: BR-009507513-1207BRA013030

PATIENT
  Age: 12 Year
  Sex: Female
  Weight: 53 kg

DRUGS (3)
  1. DESALEX [Suspect]
     Indication: THROAT IRRITATION
     Dosage: 5 MG, QD
     Route: 048
     Dates: start: 20120724, end: 20120729
  2. NASONEX [Suspect]
     Indication: THROAT IRRITATION
     Dosage: UNK UNK, QD
     Dates: start: 20120724
  3. VERTIX [Concomitant]
     Indication: MIGRAINE
     Dosage: 5 MG, QD
     Route: 048

REACTIONS (5)
  - Loss of consciousness [Not Recovered/Not Resolved]
  - Headache [Not Recovered/Not Resolved]
  - Dry mouth [Not Recovered/Not Resolved]
  - Ear pain [Not Recovered/Not Resolved]
  - Therapy cessation [Unknown]
